FAERS Safety Report 6562165-5 (Version None)
Quarter: 2010Q1

REPORT INFORMATION
  Report Type: 
  Country: None (occurrence: None)
  Receive Date: 20100130
  Receipt Date: 20091104
  Transmission Date: 20100710
  Serious: No
  Sender: FDA-Public Use
  Company Number: US-ABBOTT-09P-163-0606910-00

PATIENT
  Sex: Male
  Weight: 792.23 kg

DRUGS (2)
  1. HUMIRA [Suspect]
     Indication: POLYMYALGIA RHEUMATICA
     Dosage: TOOK ONLY ONE DOSE
     Dates: start: 20081001, end: 20081001
  2. HUMIRA [Suspect]
     Indication: RHEUMATOID ARTHRITIS
     Dosage: TOOK ONLY ONE DOSE
     Route: 058
     Dates: start: 20091014, end: 20091014

REACTIONS (8)
  - ARTHRALGIA [None]
  - CATARACT [None]
  - FRACTURE [None]
  - NASAL CONGESTION [None]
  - SINUS CONGESTION [None]
  - SINUS OPERATION [None]
  - SINUSITIS [None]
  - UNEVALUABLE EVENT [None]
